FAERS Safety Report 7612312-9 (Version None)
Quarter: 2011Q3

REPORT INFORMATION
  Report Type: 
  Country: None (occurrence: None)
  Receive Date: 20110715
  Receipt Date: 20110704
  Transmission Date: 20111222
  Serious: Yes (Other)
  Sender: FDA-Public Use
  Company Number: PHHY2011FR60383

PATIENT
  Age: 45 Year
  Sex: Female

DRUGS (2)
  1. MIACALCIN [Suspect]
     Indication: COMPLEX REGIONAL PAIN SYNDROME
     Dosage: 50 IU, QD
     Dates: start: 20110624, end: 20110630
  2. MIACALCIN [Suspect]
     Dosage: UNK UKN, UNK

REACTIONS (2)
  - MALAISE [None]
  - DYSSTASIA [None]
